FAERS Safety Report 12509092 (Version 2)
Quarter: 2016Q3

REPORT INFORMATION
  Report Type: Spontaneous
  Country: US (occurrence: US)
  Receive Date: 20160629
  Receipt Date: 20160725
  Transmission Date: 20161109
  Serious: No
  Sender: FDA-Public Use
  Company Number: US-PFIZER INC-2016297861

PATIENT
  Age: 66 Year
  Sex: Female
  Weight: 59.87 kg

DRUGS (3)
  1. LYRICA [Suspect]
     Active Substance: PREGABALIN
     Indication: NEURALGIA
     Dosage: 50 MG, ONE PILL
     Dates: start: 201606
  2. LYRICA [Suspect]
     Active Substance: PREGABALIN
     Dosage: 150 MG, AT NIGHT
  3. LYRICA [Suspect]
     Active Substance: PREGABALIN
     Dosage: 50MG CAPSULE, 2 CAPSULES AT NIGHT

REACTIONS (2)
  - Intentional product use issue [Unknown]
  - Somnolence [Not Recovered/Not Resolved]
